FAERS Safety Report 7240609-3 (Version None)
Quarter: 2011Q1

REPORT INFORMATION
  Report Type: 
  Country: None (occurrence: None)
  Receive Date: 20110124
  Receipt Date: 20110117
  Transmission Date: 20110831
  Serious: Yes (Other)
  Sender: FDA-Public Use
  Company Number: US-AMGEN-USASP2011002997

PATIENT
  Age: 64 Year
  Sex: Female

DRUGS (2)
  1. METHOTREXATE [Concomitant]
  2. ENBREL [Suspect]
     Indication: RHEUMATOID ARTHRITIS
     Dosage: 50 MG, QWK
     Dates: start: 20091001

REACTIONS (6)
  - NAUSEA [None]
  - DIZZINESS [None]
  - RETCHING [None]
  - RHEUMATOID ARTHRITIS [None]
  - COORDINATION ABNORMAL [None]
  - THERAPEUTIC RESPONSE DECREASED [None]
